FAERS Safety Report 9250829 (Version 3)
Quarter: 2014Q2

REPORT INFORMATION
  Report Type: Spontaneous
  Country: US (occurrence: US)
  Receive Date: 20130424
  Receipt Date: 20140401
  Transmission Date: 20141212
  Serious: No
  Sender: FDA-Public Use
  Company Number: US-ASTRAZENECA-2013SE27444

PATIENT
  Age: 68 Year
  Sex: Male
  Weight: 69.9 kg

DRUGS (17)
  1. NEXIUM [Suspect]
     Indication: GASTROOESOPHAGEAL REFLUX DISEASE
     Route: 048
     Dates: start: 20080910, end: 2010
  2. NEXIUM [Suspect]
     Indication: GASTROOESOPHAGEAL REFLUX DISEASE
     Route: 048
     Dates: start: 20100426
  3. OMEPRAZOLE [Suspect]
     Indication: GASTROOESOPHAGEAL REFLUX DISEASE
     Route: 048
  4. PRILOSEC OTC [Suspect]
     Indication: GASTROOESOPHAGEAL REFLUX DISEASE
     Route: 048
     Dates: start: 2008, end: 2010
  5. ROLAIDS OTC [Concomitant]
     Dates: start: 2008, end: 2010
  6. WARFARIN [Concomitant]
     Indication: THROMBOSIS
  7. METOPROLOL [Concomitant]
     Indication: HYPERTENSION
     Dates: start: 20090917
  8. ENALAPRIL [Concomitant]
     Indication: BLOOD PRESSURE ABNORMAL
  9. GABAPENTIN [Concomitant]
     Indication: NEUROPATHY PERIPHERAL
  10. TAMSULOSIN [Concomitant]
     Indication: PROSTATOMEGALY
  11. VYTORIN [Concomitant]
     Dosage: 10-40 MG
     Dates: start: 20090616
  12. PLAVIX [Concomitant]
     Dates: start: 20090917
  13. FOLIC ACID [Concomitant]
     Dates: start: 20100318
  14. AMLODIPINE BESYLATE [Concomitant]
     Dates: start: 20100407
  15. RANITIDINE [Concomitant]
  16. LIPITOR [Concomitant]
     Indication: BLOOD CHOLESTEROL INCREASED
     Dates: start: 20120523
  17. SULAR [Concomitant]
     Dates: start: 20080813

REACTIONS (6)
  - Osteoporosis [Unknown]
  - Bone disorder [Unknown]
  - Multiple fractures [Unknown]
  - Arterial disorder [Unknown]
  - Vitamin D deficiency [Unknown]
  - Depression [Unknown]
